FAERS Safety Report 5428787-X (Version None)
Quarter: 2007Q3

REPORT INFORMATION
  Report Type: 
  Country: None (occurrence: None)
  Receive Date: 20070829
  Receipt Date: 20070820
  Transmission Date: 20080115
  Serious: Yes (Hospitalization)
  Sender: FDA-Public Use
  Company Number: PHHO2007US12660

PATIENT
  Age: 68 Year
  Sex: Male
  Weight: 61 kg

DRUGS (5)
  1. ALISKIREN VS PLACEBO [Suspect]
     Indication: ACUTE CORONARY SYNDROME
     Dosage: CODE NOT BROKEN
     Route: 048
     Dates: start: 20070712, end: 19080820
  2. VALSARTAN [Suspect]
     Indication: ACUTE CORONARY SYNDROME
     Dosage: CODE NOT BROKEN
     Route: 048
     Dates: start: 20070712, end: 19080820
  3. ADVAIR DISKUS 100/50 [Concomitant]
  4. XOPENEX [Concomitant]
  5. COMBIVENT [Concomitant]

REACTIONS (3)
  - DISEASE PROGRESSION [None]
  - DYSPNOEA [None]
  - OEDEMA PERIPHERAL [None]
